FAERS Safety Report 8122063-2 (Version None)
Quarter: 2012Q1

REPORT INFORMATION
  Report Type: 
  Country: None (occurrence: None)
  Receive Date: 20120208
  Receipt Date: 20120128
  Transmission Date: 20120608
  Serious: Yes (Hospitalization)
  Sender: FDA-Public Use
  Company Number: CA-JNJFOC-20120201516

PATIENT
  Sex: Female
  Weight: 78 kg

DRUGS (2)
  1. ALL OTHER THERAPEUTIC PRODUCT [Concomitant]
     Dosage: DECREASED TO 10 MG EACH WEEK TO 5 MG ONCE DAILY THEN 2.5 MG
     Route: 065
  2. REMICADE [Suspect]
     Indication: CROHN'S DISEASE
     Dosage: ONCE EVERY 6-8 WEEKS
     Route: 042
     Dates: start: 20100101

REACTIONS (2)
  - ABDOMINAL PAIN [None]
  - FAECAL VOMITING [None]
